FAERS Safety Report 15289044 (Version 1)
Quarter: 2018Q3

REPORT INFORMATION
  Report Type: Spontaneous
  Country: CA (occurrence: CA)
  Receive Date: 20180817
  Receipt Date: 20180817
  Transmission Date: 20181010
  Serious: Yes (Death, Hospitalization, Other)
  Sender: FDA-Public Use
  Company Number: CA-CELGENEUS-CAN-20180804405

PATIENT
  Age: 80 Year
  Sex: Male

DRUGS (1)
  1. REVLIMID [Suspect]
     Active Substance: LENALIDOMIDE
     Indication: PLASMA CELL MYELOMA
     Dosage: 25 MILLIGRAM
     Route: 048
     Dates: start: 20160331, end: 20170615

REACTIONS (5)
  - Blood urine present [Unknown]
  - Ear haemorrhage [Unknown]
  - Musculoskeletal disorder [Unknown]
  - Haemorrhage intracranial [Fatal]
  - Abdominal mass [Unknown]

NARRATIVE: CASE EVENT DATE: 20180623
